FAERS Safety Report 6905211-9 (Version None)
Quarter: 2010Q3

REPORT INFORMATION
  Report Type: 
  Country: None (occurrence: None)
  Receive Date: 20100730
  Receipt Date: 20100717
  Transmission Date: 20110219
  Serious: Yes (Hospitalization, Other)
  Sender: FDA-Public Use
  Company Number: 2010AP001480

PATIENT
  Age: 60 Year
  Sex: Female

DRUGS (11)
  1. ETODOLAC [Suspect]
     Indication: BACK PAIN
  2. DIGOXIN [Suspect]
  3. METFORMIN HCL [Concomitant]
  4. ROSIGLITAZONE [Concomitant]
  5. LEVOTHYROXINE SODIUM [Concomitant]
  6. GABAPENTIN [Concomitant]
  7. CLONIDINE [Concomitant]
  8. ENALAPRIL [Concomitant]
  9. FUROSEMIDE [Concomitant]
  10. METOLAZONE [Concomitant]
  11. DEXTROPROPOXYPHENE [Concomitant]

REACTIONS (8)
  - ASTHENIA [None]
  - BACK PAIN [None]
  - BRADYCARDIA [None]
  - DIARRHOEA [None]
  - DRUG INTERACTION [None]
  - RENAL FAILURE ACUTE [None]
  - THERAPEUTIC AGENT TOXICITY [None]
  - VISION BLURRED [None]
